FAERS Safety Report 6070609-0 (Version None)
Quarter: 2009Q1

REPORT INFORMATION
  Report Type: 
  Country: None (occurrence: None)
  Receive Date: 20090209
  Receipt Date: 20090128
  Transmission Date: 20090719
  Serious: Yes (Other)
  Sender: FDA-Public Use
  Company Number: GB-PFIZER INC-2009162491

PATIENT

DRUGS (1)
  1. EXEMESTANE [Suspect]

REACTIONS (1)
  - CEREBROVASCULAR ACCIDENT [None]
